FAERS Safety Report 6631076-9 (Version None)
Quarter: 2010Q1

REPORT INFORMATION
  Report Type: 
  Country: None (occurrence: None)
  Receive Date: 20100311
  Receipt Date: 20100308
  Transmission Date: 20100710
  Serious: Yes (Other)
  Sender: FDA-Public Use
  Company Number: SE-MERCK-1002SWE00003

PATIENT
  Age: 62 Year
  Sex: Female

DRUGS (9)
  1. FOSAMAX [Suspect]
     Indication: OSTEOPOROSIS
     Route: 048
     Dates: start: 20040101, end: 20090611
  2. FOSAMAX [Suspect]
     Indication: SPINAL COMPRESSION FRACTURE
     Route: 048
     Dates: start: 20040101, end: 20090611
  3. BRICANYL [Concomitant]
     Route: 065
  4. SYMBICORT [Concomitant]
     Route: 065
  5. SALURES [Concomitant]
     Route: 065
  6. BETAPRED [Concomitant]
     Route: 065
  7. FENURIL [Concomitant]
     Route: 065
  8. PLENDIL [Concomitant]
     Route: 065
  9. METFORMIN [Concomitant]
     Route: 065

REACTIONS (2)
  - FEMUR FRACTURE [None]
  - PATHOLOGICAL FRACTURE [None]
